FAERS Safety Report 5622252-2 (Version None)
Quarter: 2008Q1

REPORT INFORMATION
  Report Type: 
  Country: None (occurrence: None)
  Receive Date: 20080114
  Receipt Date: 20071011
  Transmission Date: 20080703
  Serious: Yes (Hospitalization)
  Sender: FDA-Public Use
  Company Number: A03200705976

PATIENT
  Sex: Male
  Weight: 51.7 kg

DRUGS (10)
  1. PLAVIX [Suspect]
     Indication: PERIPHERAL ARTERIAL OCCLUSIVE DISEASE
     Dosage: 75 MG, QD, ORAL
     Route: 048
     Dates: start: 20070913, end: 20070901
  2. SIMVASTATIN [Concomitant]
  3. ACETYLSALICYLIC ACID SRT [Concomitant]
  4. LORAZEPAM [Concomitant]
  5. ISOSORBIDE MONONITRATE [Concomitant]
  6. ATENOLOL [Concomitant]
  7. OMEPRAZOLE [Concomitant]
  8. VITAMIN B-12 [Concomitant]
  9. FERROUS SULFATE TAB [Concomitant]
  10. GLYCERYL TRINITRATE [Concomitant]

REACTIONS (1)
  - RECTAL HAEMORRHAGE [None]
